FAERS Safety Report 5756227-X (Version None)
Quarter: 2008Q2

REPORT INFORMATION
  Report Type: 
  Country: None (occurrence: None)
  Receive Date: 20080602
  Receipt Date: 20080521
  Transmission Date: 20081010
  Serious: Yes (Other)
  Sender: FDA-Public Use
  Company Number: GB-PFIZER INC-2008040308

PATIENT
  Sex: Male
  Weight: 68.6 kg

DRUGS (6)
  1. CHANTIX [Suspect]
     Indication: SMOKING CESSATION THERAPY
     Route: 048
     Dates: start: 20080417, end: 20080424
  2. ACETYLSALICYLIC ACID SRT [Concomitant]
     Route: 048
  3. PROPRANOLOL [Concomitant]
     Route: 048
  4. BEZALIP-MONO [Concomitant]
     Route: 048
  5. SIMVASTATIN [Concomitant]
     Route: 048
  6. ZOPICLONE [Concomitant]
     Route: 048

REACTIONS (5)
  - AGITATION [None]
  - AMNESIA [None]
  - ANXIETY [None]
  - DISINHIBITION [None]
  - LOSS OF CONSCIOUSNESS [None]
